FAERS Safety Report 7721851-1 (Version None)
Quarter: 2011Q3

REPORT INFORMATION
  Report Type: 
  Country: None (occurrence: None)
  Receive Date: 20110831
  Receipt Date: 20110822
  Transmission Date: 20111222
  Serious: Yes (Hospitalization, Other)
  Sender: FDA-Public Use
  Company Number: DE-BRISTOL-MYERS SQUIBB COMPANY-15990161

PATIENT
  Age: 65 Year
  Sex: Female

DRUGS (4)
  1. TRIMETHOPRIM + SULFAMETHOXAZOLE [Suspect]
     Indication: PNEUMOCYSTIS JIROVECI PNEUMONIA
  2. MESNA [Suspect]
  3. AZATHIOPRINE [Suspect]
  4. CYCLOPHOSPHAMIDE [Suspect]
     Dosage: REDUCED TO 500MG/M2

REACTIONS (3)
  - URINARY TRACT INFECTION [None]
  - PNEUMOCYSTIS JIROVECI PNEUMONIA [None]
  - NEUTROPENIA [None]
